FAERS Safety Report 6676180-4 (Version None)
Quarter: 2010Q2

REPORT INFORMATION
  Report Type: 
  Country: None (occurrence: None)
  Receive Date: 20100412
  Receipt Date: 20100330
  Transmission Date: 20101027
  Serious: Yes (Other)
  Sender: FDA-Public Use
  Company Number: US-JNJFOC-20100401771

PATIENT
  Sex: Male

DRUGS (2)
  1. TYLENOL-500 [Suspect]
  2. TYLENOL-500 [Suspect]
     Indication: DRUG USE FOR UNKNOWN INDICATION

REACTIONS (3)
  - HAEMATEMESIS [None]
  - PALLOR [None]
  - PRODUCT QUALITY ISSUE [None]
